FAERS Safety Report 16954654 (Version 1)
Quarter: 2019Q4

REPORT INFORMATION
  Report Type: Spontaneous
  Country: US (occurrence: US)
  Receive Date: 20191024
  Receipt Date: 20191024
  Transmission Date: 20200122
  Serious: No
  Sender: FDA-Public Use
  Company Number: US-ACCORD-125818

PATIENT
  Sex: Male

DRUGS (1)
  1. TACROLIMUS. [Suspect]
     Active Substance: TACROLIMUS
     Indication: PROPHYLAXIS AGAINST TRANSPLANT REJECTION
     Dosage: STRENGTH: 1 MG AND 0.5 MG?DOSE: 1 MG IN MORNING AND 0.5 MG IN EVENING
     Route: 048

REACTIONS (2)
  - Personality change [Not Recovered/Not Resolved]
  - Paranoia [Not Recovered/Not Resolved]
